FAERS Safety Report 6542251-6 (Version None)
Quarter: 2010Q1

REPORT INFORMATION
  Report Type: 
  Country: None (occurrence: None)
  Receive Date: 20100119
  Receipt Date: 20100114
  Transmission Date: 20100710
  Serious: Yes (Hospitalization)
  Sender: FDA-Public Use
  Company Number: D0066074A

PATIENT
  Sex: Female
  Weight: 13 kg

DRUGS (1)
  1. NARAMIG [Suspect]
     Dosage: 2.5MG SINGLE DOSE
     Route: 048
     Dates: start: 20091205, end: 20091205

REACTIONS (2)
  - ACCIDENTAL DRUG INTAKE BY CHILD [None]
  - PERIPHERAL VASCULAR DISORDER [None]
